FAERS Safety Report 10049125 (Version 1)
Quarter: 2014Q2

REPORT INFORMATION
  Report Type: Report from Study
  Country: US (occurrence: US)
  Receive Date: 20140401
  Receipt Date: 20140401
  Transmission Date: 20141212
  Serious: Yes (Other)
  Sender: FDA-Public Use
  Company Number: US-ROCHE-1371009

PATIENT
  Age: 2 Year
  Sex: Male
  Weight: 14.7 kg

DRUGS (5)
  1. NUTROPIN AQ [Suspect]
     Indication: RENAL FAILURE CHRONIC
     Route: 058
  2. SULFAMETHOXAZOLE/TRIMETHOPRIM [Concomitant]
     Route: 048
  3. CALCITROL [Concomitant]
     Route: 048
  4. FERROUS SULFATE [Concomitant]
     Dosage: INCREASED APPROXIMATELY 7MG/KG/DAY ON 27/NOV/2013
     Route: 048
  5. EPOGEN [Concomitant]
     Route: 058

REACTIONS (4)
  - Anaemia [Unknown]
  - Upper respiratory tract infection [Unknown]
  - Pyrexia [Unknown]
  - Skin abrasion [Unknown]
